FAERS Safety Report 24920427 (Version 1)
Quarter: 2025Q1

REPORT INFORMATION
  Report Type: Spontaneous
  Country: GB (occurrence: GB)
  Receive Date: 20250204
  Receipt Date: 20250204
  Transmission Date: 20250408
  Serious: Yes (Hospitalization, Other)
  Sender: CELLTRION
  Company Number: None

PATIENT

DRUGS (2)
  1. YUFLYMA [Suspect]
     Active Substance: ADALIMUMAB-AATY
     Indication: Psoriatic arthropathy
     Dosage: 40MG INJECTION 1 PER 2 WEEKS
  2. METHOTREXATE [Concomitant]
     Active Substance: METHOTREXATE
     Indication: Psoriasis

REACTIONS (4)
  - Hyperglycaemia [Recovered/Resolved with Sequelae]
  - Product communication issue [Unknown]
  - Medication error [Unknown]
  - Ketoacidosis [Unknown]

NARRATIVE: CASE EVENT DATE: 20241107
